FAERS Safety Report 5609092-5 (Version None)
Quarter: 2008Q1

REPORT INFORMATION
  Report Type: 
  Country: None (occurrence: None)
  Receive Date: 20080131
  Receipt Date: 20080123
  Transmission Date: 20080703
  Serious: Yes (Hospitalization)
  Sender: FDA-Public Use
  Company Number: US-TYCO HEALTHCARE/MALLINCKRODT-T200800074

PATIENT

DRUGS (3)
  1. RESTORIL [Suspect]
     Indication: SLEEP DISORDER
     Route: 065
  2. TEMODAR [Suspect]
     Indication: GLIOBLASTOMA MULTIFORME
     Route: 048
  3. AMBIEN [Suspect]
     Indication: SLEEP DISORDER
     Route: 065

REACTIONS (1)
  - SOMNOLENCE [None]
